FAERS Safety Report 8835450 (Version 1)
Quarter: 2012Q4

REPORT INFORMATION
  Report Type: 
  Country: US (occurrence: US)
  Receive Date: 20121011
  Receipt Date: 20121011
  Transmission Date: 20130627
  Serious: Yes (Death)
  Sender: FDA-Public Use
  Company Number: PHEH2012US019948

PATIENT
  Age: 64 Year
  Sex: Male

DRUGS (5)
  1. AFINITOR [Suspect]
     Dosage: 10 mg, QD
     Route: 048
  2. DIOVAN HCT [Concomitant]
  3. METFORMIN [Concomitant]
  4. GLIMEPIRIDE [Concomitant]
  5. AMLOD/BENAZP [Concomitant]

REACTIONS (1)
  - Death [Fatal]
